FAERS Safety Report 8722049 (Version 8)
Quarter: 2017Q4

REPORT INFORMATION
  Report Type: Spontaneous
  Country: GB (occurrence: GB)
  Receive Date: 20120814
  Receipt Date: 20171009
  Transmission Date: 20180321
  Serious: Yes (Other)
  Sender: FDA-Public Use
  Company Number: PHFR2012GB004451

PATIENT
  Age: 55 Year
  Sex: Female
  Weight: 65 kg

DRUGS (2)
  1. LAMISIL [Suspect]
     Active Substance: TERBINAFINE HYDROCHLORIDE
     Indication: ONYCHOMYCOSIS
     Dosage: 250 MG, QD (DAILY)
     Route: 048
     Dates: start: 201111, end: 201208
  2. LISINOPRIL. [Concomitant]
     Active Substance: LISINOPRIL
     Indication: HYPERTENSION
     Dosage: 10 MG, QD (DAILY)
     Route: 048
     Dates: start: 2008

REACTIONS (2)
  - Depression [Recovering/Resolving]
  - Enzyme inhibition [Recovering/Resolving]

NARRATIVE: CASE EVENT DATE: 201204
